FAERS Safety Report 9492016 (Version 1)
Quarter: 2013Q3

REPORT INFORMATION
  Report Type: Spontaneous
  Country: US (occurrence: US)
  Receive Date: 20130830
  Receipt Date: 20130830
  Transmission Date: 20140515
  Serious: No
  Sender: FDA-Public Use
  Company Number: US-B.I. PHARMACEUTICALS,INC./RIDGEFIELD-2013-BI-26292BP

PATIENT
  Age: 65 Year
  Sex: Male

DRUGS (5)
  1. SPIRIVA [Suspect]
     Indication: CHRONIC OBSTRUCTIVE PULMONARY DISEASE
     Dosage: 18 MCG
     Route: 055
  2. MINOCYCLINE [Concomitant]
     Dosage: 100 MG
     Route: 048
  3. LISINOPRIL [Concomitant]
     Dosage: 10 MG
  4. ALLOPURINOL [Concomitant]
     Indication: GOUT
     Dosage: 300 MG
     Route: 048
  5. COMBIVENT MDI [Concomitant]
     Indication: CHRONIC OBSTRUCTIVE PULMONARY DISEASE
     Dosage: 18 MCG
     Route: 055

REACTIONS (4)
  - Bronchial irritation [Not Recovered/Not Resolved]
  - Cough [Not Recovered/Not Resolved]
  - Increased viscosity of bronchial secretion [Recovered/Resolved]
  - Medication error [Recovered/Resolved]
